FAERS Safety Report 21636844 (Version 2)
Quarter: 2023Q2

REPORT INFORMATION
  Report Type: Report from Study
  Country: BR (occurrence: BR)
  Receive Date: 20221124
  Receipt Date: 20230516
  Transmission Date: 20230721
  Serious: Yes (Other)
  Sender: FDA-Public Use
  Company Number: BR-JNJFOC-20221142865

PATIENT
  Age: 64 Year
  Sex: Female
  Weight: 78 kg

DRUGS (1)
  1. REMICADE [Suspect]
     Active Substance: INFLIXIMAB
     Indication: Ankylosing spondylitis
     Dosage: 4 VIALS
     Route: 041
     Dates: start: 20190115

REACTIONS (2)
  - Skin cancer [Unknown]
  - Off label use [Unknown]

NARRATIVE: CASE EVENT DATE: 20190115
